FAERS Safety Report 7469932-4 (Version None)
Quarter: 2011Q2

REPORT INFORMATION
  Report Type: 
  Country: None (occurrence: None)
  Receive Date: 20110510
  Receipt Date: 20110506
  Transmission Date: 20111010
  Serious: Yes (Other)
  Sender: FDA-Public Use
  Company Number: DE-ROCHE-772139

PATIENT
  Sex: Female

DRUGS (1)
  1. ACTEMRA [Suspect]
     Indication: RHEUMATOID ARTHRITIS
     Route: 042
     Dates: start: 20110324

REACTIONS (6)
  - FATIGUE [None]
  - SYNCOPE [None]
  - ANAPHYLACTOID REACTION [None]
  - CHILLS [None]
  - CIRCULATORY COLLAPSE [None]
  - NAUSEA [None]
